FAERS Safety Report 13146694 (Version 1)
Quarter: 2017Q1

REPORT INFORMATION
  Report Type: Spontaneous
  Country: CA (occurrence: CA)
  Receive Date: 20170125
  Receipt Date: 20170125
  Transmission Date: 20170428
  Serious: Yes (Other)
  Sender: FDA-Public Use
  Company Number: CA-TEVA-732285ACC

PATIENT
  Age: 26 Year
  Sex: Female

DRUGS (2)
  1. TEVA-CLINDAMYCIN [Suspect]
     Active Substance: CLINDAMYCIN PHOSPHATE
     Indication: STREPTOCOCCAL INFECTION
     Dosage: 900 MILLIGRAM DAILY;
     Route: 048
  2. CORTICOSTEROID(S) [Suspect]
     Active Substance: CORTICOSTEROID NOS
     Route: 065

REACTIONS (5)
  - Nightmare [Recovered/Resolved]
  - Illusion [Recovered/Resolved]
  - Sleep terror [Recovered/Resolved]
  - Paranoia [Recovered/Resolved]
  - Hallucination [Recovered/Resolved]
